FAERS Safety Report 15625480 (Version 4)
Quarter: 2020Q1

REPORT INFORMATION
  Report Type: Report from Study
  Country: DE (occurrence: DE)
  Receive Date: 20181116
  Receipt Date: 20200217
  Transmission Date: 20200409
  Serious: Yes (Life-Threatening, Hospitalization, Other)
  Sender: FDA-Public Use
  Company Number: DE-UCBSA-2018050176

PATIENT
  Sex: Female

DRUGS (10)
  1. PREDNISOLON [Concomitant]
     Active Substance: PREDNISOLONE
  2. TORASEMID [Concomitant]
     Active Substance: TORSEMIDE
  3. DIGITOXIN [Concomitant]
     Active Substance: DIGITOXIN
  4. XARELTO [Concomitant]
     Active Substance: RIVAROXABAN
     Indication: PRODUCT USED FOR UNKNOWN INDICATION
     Dosage: UNK
  5. L-THYROXIN [Concomitant]
     Active Substance: LEVOTHYROXINE SODIUM
  6. PANTOPRAZOL [Concomitant]
     Active Substance: PANTOPRAZOLE SODIUM
  7. CALCILAC [Concomitant]
     Active Substance: CALCIUM CARBONATE
  8. CERTOLIZUMAB PEGOL RA [Suspect]
     Active Substance: CERTOLIZUMAB PEGOL
     Indication: RHEUMATOID ARTHRITIS
     Dosage: 200 MG, EV 2 WEEKS(QOW)
     Route: 058
     Dates: start: 201802, end: 20180410
  9. CANDESARTAN. [Concomitant]
     Active Substance: CANDESARTAN
  10. SIMVAHEXAL [Concomitant]
     Active Substance: SIMVASTATIN

REACTIONS (3)
  - Rheumatoid arthritis [Recovered/Resolved]
  - Paraesthesia [Unknown]
  - Invasive ductal breast carcinoma [Not Recovered/Not Resolved]

NARRATIVE: CASE EVENT DATE: 201804
